FAERS Safety Report 13031580 (Version 4)
Quarter: 2017Q3

REPORT INFORMATION
  Report Type: Spontaneous
  Country: CN (occurrence: CN)
  Receive Date: 20161215
  Receipt Date: 20170704
  Transmission Date: 20171127
  Serious: Yes (Hospitalization, Other)
  Sender: FDA-Public Use
  Company Number: CN-BRISTOL-MYERS SQUIBB COMPANY-BMS-2016-104328

PATIENT
  Sex: Female

DRUGS (1)
  1. SPRYCEL [Suspect]
     Active Substance: DASATINIB
     Indication: CHRONIC MYELOID LEUKAEMIA
     Dosage: 50 MG, BID
     Route: 048
     Dates: start: 20160701

REACTIONS (7)
  - Cystitis [Unknown]
  - Agranulocytosis [Unknown]
  - Pneumonia [Unknown]
  - Chronic lymphocytic leukaemia recurrent [Unknown]
  - Bone marrow transplant [Unknown]
  - Cerebral haemorrhage [Unknown]
  - Off label use [Unknown]
